FAERS Safety Report 4602029-7 (Version None)
Quarter: 2005Q1

REPORT INFORMATION
  Report Type: 
  Country: None (occurrence: None)
  Receive Date: 20050214
  Receipt Date: 20040226
  Transmission Date: 20050727
  Serious: Yes (Other)
  Sender: FDA-Public Use
  Company Number: 8004085

PATIENT
  Age: 35 Year
  Sex: Female

DRUGS (6)
  1. KEPPRA [Suspect]
     Indication: CONVULSION
     Dosage: 500 MG 2/D PO
     Route: 048
     Dates: start: 20020901
  2. KEPPRA [Suspect]
     Indication: CONVULSION
     Dosage: 1500 MG 2/D PO
     Route: 048
  3. KEPPRA [Suspect]
     Indication: CONVULSION
     Dosage: 2000 MG PO
     Route: 048
  4. KEPPRA [Suspect]
     Indication: CONVULSION
     Dosage: 2500 MG PO
     Route: 048
  5. KEPPRA [Suspect]
     Indication: CONVULSION
     Dosage: 1000 MG PO
     Route: 048
  6. LARIAM [Concomitant]

REACTIONS (2)
  - GRAND MAL CONVULSION [None]
  - RASH [None]
